FAERS Safety Report 11315573 (Version 3)
Quarter: 2015Q4

REPORT INFORMATION
  Report Type: Report from Study
  Country: US (occurrence: US)
  Receive Date: 20150728
  Receipt Date: 20151029
  Transmission Date: 20160304
  Serious: Yes (Hospitalization)
  Sender: FDA-Public Use
  Company Number: PHEH2015US011010

PATIENT
  Sex: Male
  Weight: 87.53 kg

DRUGS (1)
  1. GILENYA [Suspect]
     Active Substance: FINGOLIMOD HYDROCHLORIDE
     Indication: MULTIPLE SCLEROSIS
     Dosage: 0.5 MG, QD
     Route: 048
     Dates: start: 20150515

REACTIONS (5)
  - Pollakiuria [Recovering/Resolving]
  - Weight increased [Unknown]
  - Fall [Unknown]
  - Dizziness [Unknown]
  - Rash [Not Recovered/Not Resolved]
